FAERS Safety Report 9903741 (Version 2)
Quarter: 2014Q1

REPORT INFORMATION
  Report Type: Spontaneous
  Country: US (occurrence: US)
  Receive Date: 20140218
  Receipt Date: 20140308
  Transmission Date: 20141002
  Serious: Yes (Hospitalization, Other)
  Sender: FDA-Public Use
  Company Number: US-ROCHE-1344621

PATIENT
  Age: 46 Year
  Sex: Female

DRUGS (20)
  1. RITUXAN [Suspect]
     Indication: RHEUMATOID ARTHRITIS
     Dosage: 2 WEEKS APART, TWICE A YEAR. FOUR TOTAL DOSES/YEAR
     Route: 042
  2. PREDNISONE [Concomitant]
     Indication: RHEUMATOID ARTHRITIS
     Dosage: IN MORNING
     Route: 065
  3. ARAVA [Concomitant]
     Indication: RHEUMATOID ARTHRITIS
     Route: 065
     Dates: start: 20131218
  4. SULFASALAZINE [Concomitant]
     Indication: RHEUMATOID ARTHRITIS
     Route: 065
  5. PREVACID [Concomitant]
     Route: 065
  6. PROPRANOLOL [Concomitant]
     Route: 065
  7. AMITRIPTYLINE [Concomitant]
     Dosage: AT BEDTIME
     Route: 065
  8. LYRICA [Concomitant]
     Indication: NEUROPATHY PERIPHERAL
     Route: 065
  9. SKELAXIN [Concomitant]
     Indication: PAIN
     Route: 065
  10. LORTAB [Concomitant]
     Indication: PAIN
     Dosage: 1-2 TABS AS NEEDED, 5/500MG
     Route: 048
  11. TYLENOL [Concomitant]
     Indication: PAIN
     Dosage: PRN
     Route: 065
  12. TOPAMAX [Concomitant]
  13. DEXAMETHASONE [Concomitant]
     Route: 048
  14. PANTOPRAZOLE SODIUM [Concomitant]
  15. CYCLOBENZAPRINE HCL [Concomitant]
     Route: 065
  16. FLUOXETIN [Concomitant]
  17. PRAVASTATIN SODIUM [Concomitant]
  18. WELLBUTRIN XL [Concomitant]
  19. HYDROCODONE/ACETAMINOPHEN [Concomitant]
  20. AZULFIDINE [Concomitant]
     Route: 048

REACTIONS (22)
  - Transient ischaemic attack [Recovered/Resolved]
  - VIIth nerve paralysis [Unknown]
  - Asthenia [Unknown]
  - Dysphagia [Unknown]
  - Cardiac failure congestive [Not Recovered/Not Resolved]
  - Neck pain [Unknown]
  - Abdominal rigidity [Unknown]
  - Migraine [Unknown]
  - Depression [Not Recovered/Not Resolved]
  - Vitamin D deficiency [Not Recovered/Not Resolved]
  - Breast neoplasm [Not Recovered/Not Resolved]
  - Hepatic cyst [Not Recovered/Not Resolved]
  - Hepatomegaly [Not Recovered/Not Resolved]
  - Renal cyst [Not Recovered/Not Resolved]
  - Weight increased [Not Recovered/Not Resolved]
  - Oesophageal stenosis [Not Recovered/Not Resolved]
  - Tooth loss [Not Recovered/Not Resolved]
  - Drug effect decreased [Unknown]
  - Arthralgia [Recovering/Resolving]
  - Bone pain [Unknown]
  - Infusion related reaction [Unknown]
  - Back pain [Unknown]
